FAERS Safety Report 17833361 (Version 1)
Quarter: 2020Q2

REPORT INFORMATION
  Report Type: Report from Study
  Country: US (occurrence: US)
  Receive Date: 20200528
  Receipt Date: 20200528
  Transmission Date: 20200714
  Serious: Yes (Other)
  Sender: FDA-Public Use
  Company Number: US-ROCHE-2608102

PATIENT
  Age: 67 Year
  Sex: Male
  Weight: 74.91 kg

DRUGS (14)
  1. COQ10 EXCEL [Concomitant]
     Route: 048
  2. BACLOFEN. [Concomitant]
     Active Substance: BACLOFEN
     Route: 048
  3. KRILL OIL [Concomitant]
     Active Substance: DIETARY SUPPLEMENT\KRILL OIL
     Route: 048
  4. LYRICA [Concomitant]
     Active Substance: PREGABALIN
     Route: 065
  5. REPATHA [Concomitant]
     Active Substance: EVOLOCUMAB
     Indication: BLOOD CHOLESTEROL INCREASED
     Route: 058
  6. AMLODIPINE [Concomitant]
     Active Substance: AMLODIPINE BESYLATE
     Indication: HYPERTENSION
     Route: 048
  7. NUVIGIL [Concomitant]
     Active Substance: ARMODAFINIL
     Route: 048
  8. OCREVUS [Suspect]
     Active Substance: OCRELIZUMAB
     Indication: PRIMARY PROGRESSIVE MULTIPLE SCLEROSIS
     Route: 042
     Dates: start: 2017
  9. COREG [Concomitant]
     Active Substance: CARVEDILOL
     Route: 048
  10. DICYCLOMINE [Concomitant]
     Active Substance: DICYCLOMINE HYDROCHLORIDE
     Route: 048
     Dates: start: 2020
  11. ALLOPURINOL. [Concomitant]
     Active Substance: ALLOPURINOL
     Route: 048
  12. ASPIRIN [ACETYLSALICYLIC ACID] [Concomitant]
     Active Substance: ASPIRIN
     Route: 048
  13. CLOPIDOGREL [Concomitant]
     Active Substance: CLOPIDOGREL BISULFATE
     Route: 048
  14. LUNESTA [Concomitant]
     Active Substance: ESZOPICLONE
     Dosage: IN THE EVENING ;ONGOING: YES
     Route: 048

REACTIONS (5)
  - Off label use [Unknown]
  - Weight decreased [Not Recovered/Not Resolved]
  - Enteritis infectious [Recovering/Resolving]
  - Intentional product use issue [Unknown]
  - Multiple sclerosis relapse [Not Recovered/Not Resolved]

NARRATIVE: CASE EVENT DATE: 2017
